FAERS Safety Report 7315047-5 (Version None)
Quarter: 2011Q1

REPORT INFORMATION
  Report Type: 
  Country: None (occurrence: None)
  Receive Date: 20110225
  Receipt Date: 20100421
  Transmission Date: 20110831
  Serious: No
  Sender: FDA-Public Use
  Company Number: US-MYLANLABS-2010S1004718

PATIENT
  Age: 17 Year
  Sex: Male
  Weight: 72.58 kg

DRUGS (4)
  1. CLARAVIS [Suspect]
     Indication: ACNE
     Route: 048
     Dates: start: 20100121, end: 20100218
  2. CLARAVIS [Suspect]
     Indication: SCAR
     Route: 048
     Dates: start: 20100121, end: 20100218
  3. AMNESTEEM [Suspect]
     Indication: ACNE
     Route: 048
     Dates: start: 20100121, end: 20100317
  4. AMNESTEEM [Suspect]
     Indication: SCAR
     Route: 048
     Dates: start: 20100121, end: 20100317

REACTIONS (1)
  - ASTHENIA [None]
